FAERS Safety Report 9487350 (Version 2)
Quarter: 2013Q3

REPORT INFORMATION
  Report Type: Spontaneous
  Country: US (occurrence: US)
  Receive Date: 20130829
  Receipt Date: 20130903
  Transmission Date: 20140515
  Serious: Yes (Other)
  Sender: FDA-Public Use
  Company Number: US-BAYER-2013-103849

PATIENT
  Age: 23 Year
  Sex: Female
  Weight: 104.31 kg

DRUGS (2)
  1. PHILLIPS^ MILK OF MAGNESIA [Suspect]
     Dosage: 6 TBSP, UNK
     Route: 048
     Dates: start: 20130825, end: 20130825
  2. LEVORA [Concomitant]
     Indication: ORAL CONTRACEPTION

REACTIONS (6)
  - Haemorrhoids [Recovered/Resolved]
  - Anal haemorrhage [Recovered/Resolved]
  - Diarrhoea [Recovered/Resolved]
  - Incorrect dose administered [None]
  - Nausea [Recovered/Resolved]
  - Abdominal pain [Recovered/Resolved]
